FAERS Safety Report 5960128-1 (Version None)
Quarter: 2008Q4

REPORT INFORMATION
  Report Type: 
  Country: None (occurrence: None)
  Receive Date: 20081110
  Receipt Date: 20080909
  Transmission Date: 20090506
  Serious: No
  Sender: FDA-Public Use
  Company Number: 2008US002422

PATIENT
  Age: 74 Year
  Sex: Female

DRUGS (18)
  1. LEXISCAN [Suspect]
     Indication: SCAN MYOCARDIAL PERFUSION
     Dosage: IV NOS
     Route: 042
     Dates: start: 20080808, end: 20080808
  2. AMBIEN [Concomitant]
  3. ASPIRIN [Concomitant]
  4. COLACE (DOCUSATE SODIUM) [Concomitant]
  5. COREG [Concomitant]
  6. HALDOL (HALOPERIDOL LACTATE) [Concomitant]
  7. IMODIUM (SIMETICONE) [Concomitant]
  8. KLONOPIN [Concomitant]
  9. KLOR-CON [Concomitant]
  10. LASIX (FURSEMIDE CHLORIDE) [Concomitant]
  11. LISINOPRIL (LISINOPRIL DIHYDRATE) [Concomitant]
  12. NORVASC [Concomitant]
  13. OXYCONTIN [Concomitant]
  14. VYTORIN [Concomitant]
  15. ZOLOFT [Concomitant]
  16. FEMARA [Concomitant]
  17. L-THYROXINE (LEVOTHYROXINE) [Concomitant]
  18. PERCOCET [Concomitant]

REACTIONS (1)
  - DIARRHOEA [None]
